FAERS Safety Report 18521975 (Version 2)
Quarter: 2021Q1

REPORT INFORMATION
  Report Type: Spontaneous
  Country: US (occurrence: US)
  Receive Date: 20201119
  Receipt Date: 20210216
  Transmission Date: 20210419
  Serious: No
  Sender: FDA-Public Use
  Company Number: US-IMMUNOMEDICS, INC.-2020IMMU000507

PATIENT
  Age: 43 Year
  Sex: Female

DRUGS (2)
  1. TRODELVY [Suspect]
     Active Substance: SACITUZUMAB GOVITECAN-HZIY
     Dosage: 750 MG OVER 1 HOUR ON DAYS 1 AND 8 OF EVERY 21 DAYS
     Route: 042
  2. TRODELVY [Suspect]
     Active Substance: SACITUZUMAB GOVITECAN-HZIY
     Indication: BREAST CANCER FEMALE
     Dosage: 750 MG OVER 1 HOUR ON DAYS 1 AND 8 OF EVERY 21 DAYS
     Route: 042
     Dates: start: 20200715, end: 20200715

REACTIONS (4)
  - Breast pain [Recovered/Resolved]
  - Nausea [Unknown]
  - Alopecia [Unknown]
  - Musculoskeletal chest pain [Recovered/Resolved]

NARRATIVE: CASE EVENT DATE: 202007
